FAERS Safety Report 6124111-8 (Version None)
Quarter: 2009Q1

REPORT INFORMATION
  Report Type: 
  Country: None (occurrence: None)
  Receive Date: 20090319
  Receipt Date: 20090305
  Transmission Date: 20090719
  Serious: Yes (Other)
  Sender: FDA-Public Use
  Company Number: CN-ROCHE-618915

PATIENT
  Sex: Male
  Weight: 72 kg

DRUGS (4)
  1. CELLCEPT [Suspect]
     Indication: LIVER TRANSPLANT
     Route: 048
     Dates: start: 20040116, end: 20080620
  2. CELLCEPT [Suspect]
     Dosage: REPORTED AS TAKING CELLCEPT IN THE EVENING
     Route: 048
     Dates: start: 20090225
  3. PROGRAF [Suspect]
     Indication: LIVER TRANSPLANT
     Route: 048
     Dates: start: 20040116, end: 20090224
  4. PROGRAF [Suspect]
     Dosage: REPORTED AS 0.5 MG IN THE MORNING,0.25 MG IN THE EVENING
     Route: 048
     Dates: start: 20090225

REACTIONS (2)
  - RENAL ATROPHY [None]
  - RENAL FAILURE CHRONIC [None]
